FAERS Safety Report 6216150-3 (Version None)
Quarter: 2009Q2

REPORT INFORMATION
  Report Type: 
  Country: None (occurrence: None)
  Receive Date: 20090603
  Receipt Date: 20090603
  Transmission Date: 20091009
  Serious: No
  Sender: FDA-Public Use
  Company Number: None

PATIENT
  Sex: Female
  Weight: 74.1 kg

DRUGS (1)
  1. TREXIMET [Suspect]
     Indication: MIGRAINE
     Dosage: 1 TABLET
     Dates: start: 20090518

REACTIONS (6)
  - DIZZINESS [None]
  - PALPITATIONS [None]
  - RASH ERYTHEMATOUS [None]
  - SKIN BURNING SENSATION [None]
  - UNEVALUABLE EVENT [None]
  - URTICARIA [None]
